FAERS Safety Report 7799942-9 (Version None)
Quarter: 2011Q4

REPORT INFORMATION
  Report Type: 
  Country: None (occurrence: None)
  Receive Date: 20111006
  Receipt Date: 20111004
  Transmission Date: 20120403
  Serious: Yes (Hospitalization, Other)
  Sender: FDA-Public Use
  Company Number: US-TEVA-303645USA

PATIENT
  Sex: Female

DRUGS (1)
  1. COPAXONE [Suspect]
     Indication: MULTIPLE SCLEROSIS
     Route: 058
     Dates: start: 20101212, end: 20110127

REACTIONS (8)
  - HEART RATE IRREGULAR [None]
  - IMMEDIATE POST-INJECTION REACTION [None]
  - FLUSHING [None]
  - ANXIETY [None]
  - SYNCOPE [None]
  - CHEST DISCOMFORT [None]
  - THROMBOSIS [None]
  - THROAT TIGHTNESS [None]
